FAERS Safety Report 8522717-X (Version None)
Quarter: 2012Q3

REPORT INFORMATION
  Report Type: 
  Country: None (occurrence: None)
  Receive Date: 20120719
  Receipt Date: 20120713
  Transmission Date: 20120928
  Serious: Yes (Other)
  Sender: FDA-Public Use
  Company Number: FI-GLAXOSMITHKLINE-B0809791A

PATIENT
  Age: 66 Year
  Sex: Male

DRUGS (2)
  1. FLUTICASONE PROPIONATE/SALMETEROL [Concomitant]
  2. VENTOLIN DISKUS [Suspect]
     Indication: ASTHMA
     Route: 065

REACTIONS (3)
  - DRUG INEFFECTIVE [None]
  - PRODUCT QUALITY ISSUE [None]
  - ASTHMA [None]
